FAERS Safety Report 8386434-1 (Version None)
Quarter: 2012Q2

REPORT INFORMATION
  Report Type: 
  Country: None (occurrence: None)
  Receive Date: 20120525
  Receipt Date: 20120523
  Transmission Date: 20120825
  Serious: Yes (Other)
  Sender: FDA-Public Use
  Company Number: US-PFIZER INC-2012125193

PATIENT

DRUGS (1)
  1. CHANTIX [Suspect]
     Dosage: 1 MG, 2X/DAY

REACTIONS (7)
  - ORAL CANDIDIASIS [None]
  - ACQUIRED IMMUNODEFICIENCY SYNDROME [None]
  - ECZEMA [None]
  - HIV TEST POSITIVE [None]
  - NEUROPATHY PERIPHERAL [None]
  - HYPERLIPIDAEMIA [None]
  - HYPERTENSION [None]
